FAERS Safety Report 11654642 (Version 1)
Quarter: 2015Q4

REPORT INFORMATION
  Report Type: Spontaneous
  Country: US (occurrence: US)
  Receive Date: 20151023
  Receipt Date: 20151023
  Transmission Date: 20160304
  Serious: No
  Sender: FDA-Public Use
  Company Number: US-PFIZER INC-2015227643

PATIENT
  Age: 56 Year
  Sex: Female

DRUGS (40)
  1. LYRICA [Suspect]
     Active Substance: PREGABALIN
     Dosage: 150 MG, 3X/DAY
     Dates: start: 20140707, end: 20150128
  2. LYRICA [Suspect]
     Active Substance: PREGABALIN
     Dosage: 50 MG, 3X/DAY
     Route: 048
     Dates: start: 20150612
  3. LYRICA [Suspect]
     Active Substance: PREGABALIN
     Dosage: 100 MG, 3X/DAY
     Dates: start: 20150629
  4. OXYCODONE HYDROCHLORIDE. [Concomitant]
     Active Substance: OXYCODONE HYDROCHLORIDE
     Dosage: 5 MG, AS NEEDED (1 TAB PO 3-4X3 DAY PRN)
     Route: 048
     Dates: start: 20150518, end: 20150618
  5. LYRICA [Suspect]
     Active Substance: PREGABALIN
     Dosage: 100 MG, AS NEEDED
     Route: 048
  6. ZITHROMAX [Concomitant]
     Active Substance: AZITHROMYCIN DIHYDRATE
     Dosage: 250 MG, UNK
     Route: 048
     Dates: start: 20150106, end: 20150127
  7. ROBAXIN [Concomitant]
     Active Substance: METHOCARBAMOL
     Dosage: UNK (500 MG ORAL TABLET, TAKE 1-2 TABLETS (1 GRAM) BY MOUTH 4 TIMES PER DAY)
     Dates: start: 20150612
  8. TRAMADOL HCL [Concomitant]
     Active Substance: TRAMADOL HYDROCHLORIDE
     Dosage: 50 MG, 4X/DAY (AS NEEDED)
     Route: 048
     Dates: start: 20150618
  9. AMITIZA [Concomitant]
     Active Substance: LUBIPROSTONE
     Dosage: 24 ?G, 2X/DAY
     Route: 048
     Dates: start: 20140805, end: 20140916
  10. OXYCODONE HYDROCHLORIDE. [Concomitant]
     Active Substance: OXYCODONE HYDROCHLORIDE
     Indication: PAIN
     Dosage: 20 MG, 2X/DAY
     Route: 048
     Dates: start: 20140606, end: 20140606
  11. LYRICA [Suspect]
     Active Substance: PREGABALIN
     Dosage: 100 MG, 3X/DAY
     Route: 048
     Dates: start: 20150518, end: 20150528
  12. BUTRANS [Concomitant]
     Active Substance: BUPRENORPHINE
     Dosage: UNK UNK, WEEKLY (1 PATCH TRANSDERMALLY WEEKLY)
     Route: 062
     Dates: start: 20150618
  13. ALLEGRA [Concomitant]
     Active Substance: FEXOFENADINE HYDROCHLORIDE
     Indication: HYPERSENSITIVITY
     Dosage: 180 MG, 1X/DAY
     Route: 048
  14. TRAMADOL HCL [Concomitant]
     Active Substance: TRAMADOL HYDROCHLORIDE
     Dosage: 50 MG, UNK (1 TAB EVERY4 HOURS)
     Route: 048
     Dates: start: 20150210
  15. NASACORT [Concomitant]
     Active Substance: TRIAMCINOLONE ACETONIDE
     Indication: HYPERSENSITIVITY
     Dosage: UNK (55 MCG/INH NASAL SPRAY, 2 SPRAY IN EACH NOSTRIL TWICE A DAY AS NEEDED)
  16. LEVOTHYROXINE SODIUM. [Concomitant]
     Active Substance: LEVOTHYROXINE SODIUM
     Dosage: 50 ?G, 1X/DAY
     Route: 048
     Dates: start: 20140916
  17. IMITREX [Concomitant]
     Active Substance: SUMATRIPTAN\SUMATRIPTAN SUCCINATE
     Dosage: 50 MG, 1X/DAY (AS NEEDED)
     Route: 048
  18. ASPIRIN. [Concomitant]
     Active Substance: ASPIRIN
     Dosage: 325 MG, 3X/DAY (AFTER MEALS)
     Route: 048
     Dates: start: 20140916
  19. ROBAXIN [Concomitant]
     Active Substance: METHOCARBAMOL
     Dosage: 500 MG, 3X/DAY
     Route: 048
     Dates: start: 20140707, end: 20150219
  20. NAPROSYN [Concomitant]
     Active Substance: NAPROXEN
     Dosage: 500 MG, 3X/DAY
     Route: 048
     Dates: start: 20140707, end: 20150219
  21. KENALOG [Concomitant]
     Active Substance: TRIAMCINOLONE ACETONIDE
     Dosage: 40 MG/ML
     Dates: start: 20141219, end: 20150127
  22. XANAX [Concomitant]
     Active Substance: ALPRAZOLAM
     Dosage: 1 DF, 3X/DAY (AS NEEDED)
     Dates: start: 20140707
  23. MUCINEX [Concomitant]
     Active Substance: GUAIFENESIN
     Dosage: 600 MG, 2X/DAY
     Route: 048
  24. PARAFON FORTE DSC [Concomitant]
     Active Substance: CHLORZOXAZONE
     Dosage: 500 MG, AS NEEDED (3-4TIMES DAILY)
     Route: 048
     Dates: start: 20141219, end: 20150219
  25. XYLOCAINE HCL [Concomitant]
     Dosage: 1 %, UNK (AS DIRECTED)
     Dates: start: 20141219, end: 20150127
  26. PHENTERMINE HYDROCHLORIDE. [Concomitant]
     Active Substance: PHENTERMINE HYDROCHLORIDE
     Dosage: 37.5 MG, 1X/DAY
     Route: 048
     Dates: start: 20140916, end: 20150219
  27. AMOXICILLIN. [Concomitant]
     Active Substance: AMOXICILLIN
     Dosage: 500 MG, 3X/DAY (FOR 7 DAYS)
     Route: 048
     Dates: start: 20141215, end: 20150127
  28. CELEBREX [Suspect]
     Active Substance: CELECOXIB
     Dosage: 200 MG, DAILY
     Route: 048
  29. VITAMIN D3 [Concomitant]
     Active Substance: CHOLECALCIFEROL
     Dosage: 5000 IU, 1X/DAY
     Route: 048
     Dates: start: 20150518
  30. SYNVISC [Concomitant]
     Active Substance: HYALURONATE SODIUM
     Dosage: UNK (ONE INJECTION WEEKLY)
     Dates: start: 20150518
  31. XYLOCAINE [Concomitant]
     Active Substance: LIDOCAINE HYDROCHLORIDE
     Dosage: UNK (EVERY 7 DAYS)
     Dates: start: 20150525
  32. CELEXA [Concomitant]
     Active Substance: CITALOPRAM HYDROBROMIDE
     Dosage: 20 MG, 1X/DAY
     Route: 048
     Dates: start: 20140707, end: 20150219
  33. OXYCODONE HYDROCHLORIDE. [Concomitant]
     Active Substance: OXYCODONE HYDROCHLORIDE
     Dosage: 5 MG, AS NEEDED (3-4 TIMES A DAY NEEDED)
     Route: 048
     Dates: start: 20140707, end: 20141219
  34. OXYCONTIN [Concomitant]
     Active Substance: OXYCODONE HYDROCHLORIDE
     Dosage: 15 MG, 2X/DAY
     Route: 048
     Dates: start: 20140805, end: 20150128
  35. OXYCONTIN [Concomitant]
     Active Substance: OXYCODONE HYDROCHLORIDE
     Dosage: 20 MG, 2X/DAY
     Route: 048
     Dates: start: 20140707, end: 20140916
  36. VITAMIN D3 [Concomitant]
     Active Substance: CHOLECALCIFEROL
     Dosage: 2000 IU, 1X/DAY
     Route: 048
     Dates: start: 20140916
  37. NEURONTIN [Concomitant]
     Active Substance: GABAPENTIN
     Dosage: 300 MG, UNK (1 TAB DAILY X 3 DAYS, THEN 1 TAB BID X 3 DAYS, THEN 1 TAB TID THEREAFTER)
     Route: 048
  38. XYLOCAINE HCL [Concomitant]
     Dosage: 1 %, UNK (AS DIRECTED)
     Dates: start: 20140707, end: 20141009
  39. MAGNESIUM OXIDE. [Concomitant]
     Active Substance: MAGNESIUM OXIDE
     Dosage: 400 MG, 2X/DAY
     Route: 048
     Dates: start: 20141219, end: 20141222
  40. KENALOG [Concomitant]
     Active Substance: TRIAMCINOLONE ACETONIDE
     Dosage: UNK (AS DIRECTED)
     Dates: start: 20140707

REACTIONS (3)
  - Nausea [Unknown]
  - Vomiting [Unknown]
  - Pain [Unknown]
